FAERS Safety Report 10413852 (Version 1)
Quarter: 2014Q3

REPORT INFORMATION
  Report Type: Report from Study
  Country: US (occurrence: US)
  Receive Date: 20140827
  Receipt Date: 20140827
  Transmission Date: 20150326
  Serious: Yes (Other)
  Sender: FDA-Public Use
  Company Number: US-TAKEDA-2014MPI002221

PATIENT
  Age: 58 Year

DRUGS (2)
  1. VELCADE [Suspect]
     Active Substance: BORTEZOMIB
     Indication: PLASMA CELL MYELOMA
     Dosage: 2.6 MG, 4 DAYS ON 4 DAYS OFF
     Route: 040
     Dates: start: 20100218, end: 20100720
  2. DEXAMETHASONE. [Suspect]
     Active Substance: DEXAMETHASONE
     Indication: PLASMA CELL MYELOMA
     Dosage: 4 MG, QD
     Route: 048
     Dates: start: 20140218, end: 20140720

REACTIONS (1)
  - Oesophagitis ulcerative [Unknown]

NARRATIVE: CASE EVENT DATE: 20100301
